FAERS Safety Report 5429197-1 (Version None)
Quarter: 2007Q3

REPORT INFORMATION
  Report Type: 
  Country: None (occurrence: None)
  Receive Date: 20070827
  Receipt Date: 20070827
  Transmission Date: 20080115
  Serious: Yes (Other)
  Sender: FDA-Public Use
  Company Number: None

PATIENT
  Age: 50 Year
  Sex: Female
  Weight: 67.1324 kg

DRUGS (1)
  1. ALLI [Suspect]
     Indication: WEIGHT CONTROL
     Dosage: TWICE A DAY  EVERYDAY  PO
     Route: 048
     Dates: start: 20070807, end: 20070824

REACTIONS (3)
  - BLISTER [None]
  - PRURITUS [None]
  - RASH [None]
